FAERS Safety Report 7811450-5 (Version None)
Quarter: 2011Q4

REPORT INFORMATION
  Report Type: 
  Country: None (occurrence: None)
  Receive Date: 20111013
  Receipt Date: 20111010
  Transmission Date: 20120403
  Serious: Yes (Death, Congenital Anomaly, Other)
  Sender: FDA-Public Use
  Company Number: US-PFIZER INC-2011158080

PATIENT
  Sex: Female

DRUGS (4)
  1. DETROL LA [Suspect]
     Indication: HYPERTONIC BLADDER
     Dosage: 4 MG, 1X/DAY
     Route: 064
  2. GUAIFENESIN [Concomitant]
     Indication: NASOPHARYNGITIS
     Dosage: UNK
     Dates: start: 20100101
  3. TYLENOL-500 [Concomitant]
     Indication: NASOPHARYNGITIS
     Dosage: UNK
     Dates: start: 20100101
  4. SUDAFED 12 HOUR [Concomitant]
     Indication: NASOPHARYNGITIS
     Dosage: UNK
     Dates: start: 20100101

REACTIONS (4)
  - MATERNAL EXPOSURE DURING PREGNANCY [None]
  - RENAL APLASIA [None]
  - MATERNAL DRUGS AFFECTING FOETUS [None]
  - INTRA-UTERINE DEATH [None]
